FAERS Safety Report 13756852 (Version 1)
Quarter: 2017Q3

REPORT INFORMATION
  Report Type: Spontaneous
  Country: US (occurrence: US)
  Receive Date: 20170714
  Receipt Date: 20170714
  Transmission Date: 20171127
  Serious: No
  Sender: FDA-Public Use
  Company Number: US-ACTELION-A-US2016-142476

PATIENT
  Age: 70 Year
  Sex: Female

DRUGS (12)
  1. FENOFIBRATE. [Concomitant]
     Active Substance: FENOFIBRATE
  2. METFORMIN [Concomitant]
     Active Substance: METFORMIN HYDROCHLORIDE
  3. FOLIC ACID. [Concomitant]
     Active Substance: FOLIC ACID
  4. OPSUMIT [Suspect]
     Active Substance: MACITENTAN
     Indication: PULMONARY ARTERIAL HYPERTENSION
     Dosage: 10 MG, QD
     Route: 048
     Dates: start: 20150325
  5. COQ 10 [Concomitant]
     Active Substance: UBIDECARENONE
  6. TACROLIMUS. [Concomitant]
     Active Substance: TACROLIMUS
  7. BRIMONIDINE [Concomitant]
     Active Substance: BRIMONIDINE TARTRATE
  8. BENAZEPRIL [Concomitant]
     Active Substance: BENAZEPRIL HYDROCHLORIDE
  9. FLUTICASONE. [Concomitant]
     Active Substance: FLUTICASONE
  10. LASIX [Concomitant]
     Active Substance: FUROSEMIDE
  11. DOXYCYCLINE. [Concomitant]
     Active Substance: DOXYCYCLINE
  12. SPIRONOLACTONE. [Concomitant]
     Active Substance: SPIRONOLACTONE

REACTIONS (4)
  - Unevaluable event [Recovering/Resolving]
  - Erythema [Recovering/Resolving]
  - Nasopharyngitis [Not Recovered/Not Resolved]
  - Joint swelling [Recovering/Resolving]

NARRATIVE: CASE EVENT DATE: 20160914
